FAERS Safety Report 5803516-6 (Version None)
Quarter: 2008Q3

REPORT INFORMATION
  Report Type: 
  Country: None (occurrence: None)
  Receive Date: 20080708
  Receipt Date: 20080625
  Transmission Date: 20090109
  Serious: Yes (Hospitalization)
  Sender: FDA-Public Use
  Company Number: AT-AMGEN-UK270220

PATIENT
  Sex: Male

DRUGS (10)
  1. PANITUMUMAB [Suspect]
     Indication: COLORECTAL CANCER
     Route: 042
     Dates: start: 20080104
  2. IRINOTECAN [Concomitant]
  3. FLUOROURACIL [Concomitant]
  4. BEPANTHEN [Concomitant]
     Route: 061
     Dates: start: 20080215, end: 20080531
  5. LOVENOX [Concomitant]
     Route: 058
     Dates: start: 20080301
  6. COCAINE [Concomitant]
     Route: 047
     Dates: start: 20080229, end: 20080229
  7. NAVOBAN [Concomitant]
     Route: 048
     Dates: start: 20080105
  8. FORTECORTIN [Concomitant]
     Route: 048
     Dates: start: 20080105
  9. LOPERAMIDE HCL [Concomitant]
     Route: 048
     Dates: start: 20080104
  10. LEUCOVORIN CALCIUM [Concomitant]

REACTIONS (1)
  - PNEUMONIA [None]
